FAERS Safety Report 10335715 (Version 2)
Quarter: 2014Q3

REPORT INFORMATION
  Report Type: Spontaneous
  Country: US (occurrence: US)
  Receive Date: 20140723
  Receipt Date: 20140723
  Transmission Date: 20150326
  Serious: Yes (Hospitalization)
  Sender: FDA-Public Use
  Company Number: US-BRISTOL-MYERS SQUIBB COMPANY-19044189

PATIENT
  Age: 74 Year
  Sex: Female

DRUGS (2)
  1. COUMADIN [Suspect]
     Active Substance: WARFARIN SODIUM
  2. SUTENT [Suspect]
     Active Substance: SUNITINIB MALATE
     Dosage: DAILY FOR 4 WEEKS?OFF 2 WEEKS
     Route: 048
     Dates: start: 20121005, end: 20130610

REACTIONS (1)
  - Gastrointestinal haemorrhage [Recovered/Resolved]

NARRATIVE: CASE EVENT DATE: 201306
